FAERS Safety Report 11690089 (Version 1)
Quarter: 2015Q4

REPORT INFORMATION
  Report Type: Spontaneous
  Country: US (occurrence: None)
  Receive Date: 20151030
  Receipt Date: 20151030
  Transmission Date: 20160304
  Serious: No
  Sender: FDA-Public Use
  Company Number: None

PATIENT
  Age: 40 Year
  Sex: Male
  Weight: 120.2 kg

DRUGS (5)
  1. IRBISARTAN [Concomitant]
  2. GENERIC ZYRTEC [Concomitant]
  3. CPAP [Concomitant]
     Active Substance: DEVICE
  4. FISH OIL [Concomitant]
     Active Substance: FISH OIL
  5. ZOLPIDEM ER [Suspect]
     Active Substance: ZOLPIDEM\ZOLPIDEM TARTRATE
     Dosage: 1 PILL
     Route: 048

REACTIONS (3)
  - Drug effect decreased [None]
  - Product contamination [None]
  - Migraine [None]

NARRATIVE: CASE EVENT DATE: 20151025
